FAERS Safety Report 9872241 (Version 1)
Quarter: 2014Q1

REPORT INFORMATION
  Report Type: Spontaneous
  Country: US (occurrence: US)
  Receive Date: 20140205
  Receipt Date: 20140205
  Transmission Date: 20141002
  Serious: No
  Sender: FDA-Public Use
  Company Number: US-ALLERGAN-1306023US

PATIENT
  Age: 57 Year
  Sex: Female

DRUGS (5)
  1. BOTOX COSMETIC [Suspect]
     Indication: SKIN WRINKLING
     Dosage: 56 UNITS, SINGLE
     Route: 030
     Dates: start: 201303, end: 201303
  2. BOTOX COSMETIC [Suspect]
     Indication: SKIN WRINKLING
     Dosage: 56 UNITS, SINGLE
     Route: 030
     Dates: start: 201302, end: 201302
  3. BOTOX COSMETIC [Suspect]
     Indication: SKIN WRINKLING
  4. TOPROL [Concomitant]
     Indication: HYPERTENSION
  5. SYNTHROID [Concomitant]
     Indication: HYPOTHYROIDISM

REACTIONS (1)
  - Skin disorder [Unknown]
